FAERS Safety Report 23768097 (Version 1)
Quarter: 2024Q2

REPORT INFORMATION
  Report Type: Spontaneous
  Country: US (occurrence: US)
  Receive Date: 20240422
  Receipt Date: 20240422
  Transmission Date: 20240716
  Serious: Yes (Other)
  Sender: FDA-Public Use
  Company Number: US-CIPLA (EU) LIMITED-2024US03797

PATIENT

DRUGS (16)
  1. ICATIBANT [Suspect]
     Active Substance: ICATIBANT ACETATE
     Indication: Hereditary angioedema with normal C1 esterase inhibitor
     Dosage: 30 MG/3 ML, PRN
     Route: 058
     Dates: start: 202310
  2. ICATIBANT [Suspect]
     Active Substance: ICATIBANT ACETATE
     Indication: Hereditary angioedema
     Dosage: 30 MG/3 ML, PRN
     Route: 058
     Dates: start: 202310
  3. TRILEPTAL [Concomitant]
     Active Substance: OXCARBAZEPINE
     Indication: Seizure
     Dosage: 300 MILLIGRAM, BID (300MG, TWICE A DAY)
     Route: 065
     Dates: start: 2022
  4. LACTATED RINGERS SOLUTION [Concomitant]
     Active Substance: CALCIUM CHLORIDE\POTASSIUM CHLORIDE\SODIUM CHLORIDE\SODIUM LACTATE
     Indication: Postural orthostatic tachycardia syndrome
     Dosage: 1000MG 1-2 TIMES PER DAY
     Route: 065
     Dates: start: 2022
  5. IVABRADINE [Concomitant]
     Active Substance: IVABRADINE
     Indication: Postural orthostatic tachycardia syndrome
     Dosage: 5 MILLIGRAM, BID (5MG, TWICE A DAY)
     Route: 065
     Dates: start: 202403
  6. UBRELVY [Concomitant]
     Active Substance: UBROGEPANT
     Indication: Migraine
     Dosage: 100MG/TWICE A WEEK IF NOT MORE AS NEEDED
     Route: 065
     Dates: start: 202403
  7. NURTEC ODT [Concomitant]
     Active Substance: RIMEGEPANT SULFATE
     Indication: Migraine
     Dosage: 75 MILLIGRAM, PRN
     Route: 065
     Dates: end: 202403
  8. LYRICA [Concomitant]
     Active Substance: PREGABALIN
     Indication: Fibromyalgia
     Dosage: 50 MILLIGRAM, BID (50MG, TWICE A DAY)
     Route: 065
     Dates: start: 202404
  9. LYRICA [Concomitant]
     Active Substance: PREGABALIN
     Indication: Nerve injury
  10. TAKHZYRO [Concomitant]
     Active Substance: LANADELUMAB-FLYO
     Indication: Hereditary angioedema
     Dosage: 300MG/2ML/ SUBCUTANEOUS EVERY 14 DAYS
     Route: 058
  11. HYDRALAZINE [Concomitant]
     Active Substance: HYDRALAZINE HYDROCHLORIDE
     Indication: Hypertension
     Dosage: 25 MILLIGRAM, PRN (25MG AS NEEDED)
     Route: 065
     Dates: start: 2022
  12. PROMAZINE [Concomitant]
     Active Substance: PROMAZINE
     Indication: Nausea
     Dosage: 25 MILLIGRAM, TID (25MG EVERY 8 HOURS)
     Route: 065
     Dates: start: 2020
  13. PROMAZINE [Concomitant]
     Active Substance: PROMAZINE
     Indication: Vomiting
  14. ZOFRAN [Concomitant]
     Active Substance: ONDANSETRON HYDROCHLORIDE
     Indication: Nausea
     Dosage: 4 MILLIGRAM, TID (4MG/1 TABLET EVERY 8 HOURS)
     Route: 065
     Dates: start: 202403
  15. ZOFRAN [Concomitant]
     Active Substance: ONDANSETRON HYDROCHLORIDE
     Indication: Vomiting
  16. NAPROXEN [Concomitant]
     Active Substance: NAPROXEN
     Indication: Pain
     Dosage: 220MG/2 TABLETS EVERY 4-6 HOURS
     Route: 065
     Dates: start: 202403

REACTIONS (4)
  - Arthropathy [Unknown]
  - Needle issue [Unknown]
  - Product quality issue [Unknown]
  - Injection site bruising [Not Recovered/Not Resolved]

NARRATIVE: CASE EVENT DATE: 20240311
